FAERS Safety Report 5363304-4 (Version None)
Quarter: 2007Q2

REPORT INFORMATION
  Report Type: 
  Country: None (occurrence: None)
  Receive Date: 20070620
  Receipt Date: 20070608
  Transmission Date: 20071010
  Serious: Yes (Other)
  Sender: FDA-Public Use
  Company Number: US-JNJFOC-20070602622

PATIENT
  Sex: Male

DRUGS (2)
  1. RAZADYNE ER [Suspect]
     Indication: DRUG USE FOR UNKNOWN INDICATION
     Route: 048
  2. ROZEREM [Suspect]
     Indication: INSOMNIA

REACTIONS (2)
  - DRUG DISPENSING ERROR [None]
  - NO ADVERSE DRUG EFFECT [None]
